FAERS Safety Report 17525738 (Version 1)
Quarter: 2020Q1

REPORT INFORMATION
  Report Type: Spontaneous
  Country: US (occurrence: US)
  Receive Date: 20200303
  Receipt Date: 20200303
  Transmission Date: 20200409
  Serious: No
  Sender: FDA-Public Use
  Company Number: None

PATIENT
  Age: 72 Year
  Sex: Male

DRUGS (1)
  1. CARBOPLATIN (CARBOPLATIN 50MG/VIL INJ) [Suspect]
     Active Substance: CARBOPLATIN
     Indication: SKIN CANCER
     Route: 042
     Dates: start: 20191017

REACTIONS (3)
  - Orthostatic hypotension [None]
  - Purulent discharge [None]
  - Dermatitis [None]

NARRATIVE: CASE EVENT DATE: 20191118
